FAERS Safety Report 25937585 (Version 1)
Quarter: 2025Q4

REPORT INFORMATION
  Report Type: Spontaneous
  Country: EU (occurrence: EU)
  Receive Date: 20251018
  Receipt Date: 20251018
  Transmission Date: 20260118
  Serious: Yes (Hospitalization, Other)
  Sender: AUROBINDO
  Company Number: EU-AFSSAPS-TO2025001602

PATIENT
  Age: 78 Year
  Sex: Female

DRUGS (6)
  1. LEVOFLOXACIN [Suspect]
     Active Substance: LEVOFLOXACIN
     Indication: Bacterial infection
     Dosage: 250 MILLIGRAM, TWO TIMES A DAY
     Route: 048
     Dates: start: 20250331, end: 20250403
  2. FUROSEMIDE [Suspect]
     Active Substance: FUROSEMIDE
     Indication: Cardiac failure
     Dosage: 40 MILLIGRAM, 3 TIMES A DAY
     Route: 042
     Dates: start: 20250327, end: 20250403
  3. DAPTOMYCIN [Suspect]
     Active Substance: DAPTOMYCIN
     Indication: Bacterial infection
     Dosage: 1000 MILLIGRAM (48 HOUR)
     Route: 048
     Dates: start: 20250404
  4. CEFTAROLINE FOSAMIL [Suspect]
     Active Substance: CEFTAROLINE FOSAMIL
     Indication: Bacterial infection
     Dosage: 300 MILLIGRAM, 3 TIMES A DAY
     Route: 048
     Dates: start: 20250404
  5. CALCIPARINE [Suspect]
     Active Substance: HEPARIN CALCIUM
     Indication: Thrombosis prophylaxis
     Dosage: 1 DOSAGE FORM, ONCE A DAY
     Route: 058
     Dates: start: 20250309, end: 20250404
  6. CALCIPARINE [Suspect]
     Active Substance: HEPARIN CALCIUM
     Dosage: 2 DOSAGE FORM, ONCE A DAY
     Route: 058
     Dates: start: 20250309, end: 20250404

REACTIONS (3)
  - Acute kidney injury [Recovering/Resolving]
  - Condition aggravated [Recovering/Resolving]
  - Haematoma [Recovering/Resolving]

NARRATIVE: CASE EVENT DATE: 20250327
